FAERS Safety Report 5040613-X (Version None)
Quarter: 2006Q2

REPORT INFORMATION
  Report Type: 
  Country: None (occurrence: None)
  Receive Date: 20060630
  Receipt Date: 20060407
  Transmission Date: 20061013
  Serious: Yes (Hospitalization)
  Sender: FDA-Public Use
  Company Number: FR-ABBOTT-06P-056-0330125-00

PATIENT
  Sex: Female
  Weight: 80 kg

DRUGS (8)
  1. LIPANTHYL 160MG [Suspect]
     Indication: HYPERTRIGLYCERIDAEMIA
     Route: 048
     Dates: start: 20000101, end: 20051115
  2. LIPANTHYL 160MG [Suspect]
     Route: 048
     Dates: start: 20051125, end: 20060301
  3. LIPANTHYL 160MG [Suspect]
     Dates: start: 20060405
  4. LIPANTHYL 145MG [Suspect]
     Indication: HYPERCHOLESTEROLAEMIA
     Route: 048
     Dates: start: 20060301, end: 20060401
  5. ESTRADIOL [Concomitant]
     Indication: DRUG USE FOR UNKNOWN INDICATION
  6. PROGESTERONE [Concomitant]
     Indication: DRUG USE FOR UNKNOWN INDICATION
  7. MOXONIDINE [Concomitant]
     Indication: DRUG USE FOR UNKNOWN INDICATION
  8. LEVOTHYROXINE SODIUM [Concomitant]
     Indication: DRUG USE FOR UNKNOWN INDICATION

REACTIONS (3)
  - NECK PAIN [None]
  - ROTATOR CUFF SYNDROME [None]
  - TENDON RUPTURE [None]
